FAERS Safety Report 6888101-X (Version None)
Quarter: 2010Q3

REPORT INFORMATION
  Report Type: 
  Country: None (occurrence: None)
  Receive Date: 20100730
  Receipt Date: 20100722
  Transmission Date: 20110219
  Serious: Yes (Other)
  Sender: FDA-Public Use
  Company Number: FR-PFIZER INC-2010091775

PATIENT
  Age: 55 Year
  Sex: Male

DRUGS (9)
  1. TAHOR [Suspect]
     Indication: HYPERCHOLESTEROLAEMIA
     Dosage: UNK
     Route: 048
  2. ESIDRIX [Suspect]
     Indication: HYPERTENSION
     Dosage: UNK
     Route: 048
  3. KINERET [Suspect]
     Indication: ERDHEIM-CHESTER DISEASE
     Dosage: UNK
     Route: 058
  4. RAMIPRIL [Suspect]
     Indication: HYPERTENSION
     Dosage: UNK
     Route: 048
  5. TOPALGIC [Suspect]
     Indication: PAIN
     Dosage: UNK
     Route: 048
  6. MEDIATENSYL [Suspect]
     Indication: HYPERTENSION
     Dosage: UNK
     Route: 048
  7. OMEPRAZOLE [Suspect]
     Dosage: UNK
     Route: 048
  8. ASPEGIC 1000 [Suspect]
     Dosage: UNK
     Route: 048
  9. KAYEXALATE [Suspect]
     Dosage: UNK
     Route: 048

REACTIONS (2)
  - HYPOAESTHESIA [None]
  - PAIN IN EXTREMITY [None]
